FAERS Safety Report 10210281 (Version 1)
Quarter: 2014Q2

REPORT INFORMATION
  Report Type: Spontaneous
  Country: US (occurrence: US)
  Receive Date: 20140602
  Receipt Date: 20140602
  Transmission Date: 20141212
  Serious: No
  Sender: FDA-Public Use
  Company Number: US-PFIZER INC-2014148263

PATIENT
  Age: 87 Year
  Sex: Female

DRUGS (10)
  1. DEPO-MEDROL [Suspect]
     Dosage: UNK
  2. BICILLIN L-A [Suspect]
     Dosage: UNK
  3. NAPROSYN [Suspect]
     Dosage: UNK
  4. RELAFEN [Suspect]
     Dosage: UNK
  5. DISALCID [Suspect]
     Dosage: UNK
  6. FOSAMAX [Suspect]
     Dosage: UNK
  7. VIOXX [Suspect]
     Dosage: UNK
  8. BONIVA [Suspect]
     Dosage: UNK
  9. XYLOCAINE [Suspect]
     Dosage: UNK
  10. NUPRIN [Suspect]
     Dosage: UNK

REACTIONS (1)
  - Drug hypersensitivity [Unknown]
